FAERS Safety Report 9252477 (Version 1)
Quarter: 2013Q1

REPORT INFORMATION
  Report Type: Spontaneous
  Country: US (occurrence: None)
  Receive Date: 20130305
  Receipt Date: 20130305
  Transmission Date: 20140127
  Serious: Yes (Disabling)
  Sender: FDA-Public Use
  Company Number: 163-21880-12083250

PATIENT
  Age: 75 Year
  Sex: Female

DRUGS (3)
  1. REVLIMID (LENALIDOMIDE) (25 MILLIGRAM, CAPSULES) [Suspect]
     Indication: PLASMA CELL MYELOMA
     Dosage: 08/15/2012 - ONGOING, CAPSULE, 12.5 MG, 14 IN 28 D, PO
  2. VELCADE [Concomitant]
  3. DEXAMETHASONE (DEXAMETHASONE) [Concomitant]

REACTIONS (2)
  - Cardiac failure congestive [None]
  - Urinary tract infection [None]
